FAERS Safety Report 25165755 (Version 1)
Quarter: 2025Q2

REPORT INFORMATION
  Report Type: Spontaneous
  Country: US (occurrence: US)
  Receive Date: 20250407
  Receipt Date: 20250407
  Transmission Date: 20250716
  Serious: No
  Sender: ROCHE
  Company Number: US-ROCHE-10000246042

PATIENT
  Sex: Female

DRUGS (1)
  1. HERCEPTIN HYLECTA [Suspect]
     Active Substance: HYALURONIDASE-OYSK\TRASTUZUMAB
     Indication: Breast cancer
     Route: 065

REACTIONS (2)
  - Product administration error [Unknown]
  - No adverse event [Unknown]

NARRATIVE: CASE EVENT DATE: 20250328
